FAERS Safety Report 6981441-5 (Version None)
Quarter: 2010Q3

REPORT INFORMATION
  Report Type: 
  Country: None (occurrence: None)
  Receive Date: 20100914
  Receipt Date: 20100831
  Transmission Date: 20110219
  Serious: Yes (Death)
  Sender: FDA-Public Use
  Company Number: US-MYLANLABS-2010S1015914

PATIENT
  Age: 57 Year
  Sex: Male

DRUGS (6)
  1. FENTANYL CITRATE [Suspect]
     Route: 048
  2. DULOXETINE [Suspect]
     Route: 065
  3. COCAINE [Suspect]
     Route: 065
  4. FLUOXETINE [Suspect]
     Route: 065
  5. TRAZODONE HCL [Suspect]
     Route: 065
  6. ALCOHOL [Suspect]
     Route: 065

REACTIONS (3)
  - ALCOHOL INTERACTION [None]
  - DRUG TOXICITY [None]
  - INCORRECT ROUTE OF DRUG ADMINISTRATION [None]
